FAERS Safety Report 8407461-1 (Version None)
Quarter: 2012Q2

REPORT INFORMATION
  Report Type: 
  Country: None (occurrence: None)
  Receive Date: 20120323
  Receipt Date: 20110506
  Transmission Date: 20120825
  Serious: Yes (Hospitalization)
  Sender: FDA-Public Use
  Company Number: 163-21880-11051954

PATIENT
  Age: 80 Year
  Sex: Male
  Weight: 83.4619 kg

DRUGS (12)
  1. THIAMINE HCL [Concomitant]
  2. MULTIVITAMIN [Concomitant]
  3. METOPROLOL TARTRATE [Concomitant]
  4. FLOMAX [Concomitant]
  5. FOLIC ACID [Concomitant]
  6. ALDACTONE [Concomitant]
  7. SENNA (SENNA) [Concomitant]
  8. LENALIDOMIDE [Suspect]
     Indication: MULTIPLE MYELOMA
     Dosage: 10 MG, DAILY FOR 21 DAYS, PO
     Route: 048
     Dates: start: 20101210
  9. LASIX [Concomitant]
  10. POTASSIUM CHLORIDE [Concomitant]
  11. COLACE (DOCUSATE SODIUM) [Concomitant]
  12. VESICARE [Concomitant]

REACTIONS (2)
  - ENDOCARDITIS [None]
  - FALL [None]
